FAERS Safety Report 6010334-5 (Version None)
Quarter: 2008Q4

REPORT INFORMATION
  Report Type: 
  Country: None (occurrence: None)
  Receive Date: 20081218
  Receipt Date: 20080807
  Transmission Date: 20090506
  Serious: No
  Sender: FDA-Public Use
  Company Number: A0741569A

PATIENT
  Age: 4 Month
  Sex: Male

DRUGS (2)
  1. FLONASE [Suspect]
     Indication: RHINITIS
     Route: 045
     Dates: start: 20080601
  2. NO CONCURRENT MEDICATION [Concomitant]

REACTIONS (1)
  - OFF LABEL USE [None]
